FAERS Safety Report 4400877-X (Version None)
Quarter: 2004Q3

REPORT INFORMATION
  Report Type: 
  Country: None (occurrence: None)
  Receive Date: 20040907
  Receipt Date: 20030716
  Transmission Date: 20050211
  Serious: No
  Sender: FDA-Public Use
  Company Number: US-BRISTOL-MYERS SQUIBB COMPANY-12328613

PATIENT
  Age: 66 Year
  Sex: Male
  Weight: 93 kg

DRUGS (7)
  1. COUMADIN [Suspect]
     Indication: PHLEBITIS
     Dosage: THERAPY DURATION:15 TO 20 YEARS. DOSE INCREASED TO 7.0 MG THEN TO 7.5 MG.
     Route: 048
  2. PRAVACHOL [Concomitant]
     Dosage: DURATION OF THERAPY:  FEW YEARS
     Route: 048
  3. RHINOCORT [Concomitant]
  4. PREVACID [Concomitant]
  5. CHONDROITIN + GLUCOSAMINE [Concomitant]
  6. OMEGA-3 [Concomitant]
  7. DOXAZOSIN [Concomitant]

REACTIONS (2)
  - INTERNATIONAL NORMALISED RATIO DECREASED [None]
  - WEIGHT DECREASED [None]
